FAERS Safety Report 4979633-X (Version None)
Quarter: 2006Q2

REPORT INFORMATION
  Report Type: 
  Country: None (occurrence: None)
  Receive Date: 20060418
  Receipt Date: 20060408
  Transmission Date: 20061013
  Serious: Yes (Hospitalization)
  Sender: FDA-Public Use
  Company Number: MEDI-0004389

PATIENT
  Age: 2 Month
  Sex: 0
  Weight: 2.5 kg

DRUGS (5)
  1. SYNAGIS [Suspect]
     Indication: ANTIVIRAL PROPHYLAXIS
     Dosage: 38 MG, 1 IN 30 D, INTRAMUSCULAR; SEE IMAGE
     Route: 030
     Dates: start: 20051118, end: 20051118
  2. SYNAGIS [Suspect]
     Indication: ANTIVIRAL PROPHYLAXIS
     Dosage: 38 MG, 1 IN 30 D, INTRAMUSCULAR; SEE IMAGE
     Route: 030
     Dates: start: 20060314, end: 20060314
  3. SYNAGIS [Suspect]
     Indication: ANTIVIRAL PROPHYLAXIS
     Dosage: 38 MG, 1 IN 30 D, INTRAMUSCULAR; SEE IMAGE
     Route: 030
     Dates: start: 20051216
  4. SYNAGIS [Suspect]
     Indication: ANTIVIRAL PROPHYLAXIS
     Dosage: 38 MG, 1 IN 30 D, INTRAMUSCULAR; SEE IMAGE
     Route: 030
     Dates: start: 20060117
  5. SYNAGIS [Suspect]
     Indication: ANTIVIRAL PROPHYLAXIS
     Dosage: 38 MG, 1 IN 30 D, INTRAMUSCULAR; SEE IMAGE
     Route: 030
     Dates: start: 20060216

REACTIONS (2)
  - BRONCHIOLITIS [None]
  - RESPIRATORY DISTRESS [None]
